FAERS Safety Report 5196731-9 (Version None)
Quarter: 2006Q4

REPORT INFORMATION
  Report Type: 
  Country: None (occurrence: None)
  Receive Date: 20061228
  Receipt Date: 20061228
  Transmission Date: 20070319
  Serious: Yes (Life-Threatening, Hospitalization, Disabling, Other)
  Sender: FDA-Public Use
  Company Number: None

PATIENT
  Sex: Male
  Weight: 101.6057 kg

DRUGS (1)
  1. TAXUS EXPRESS 2 STENT BOSTON SCIENTIFIC [Suspect]
     Indication: OBSTRUCTION
     Dates: start: 20060717

REACTIONS (1)
  - MYOCARDIAL INFARCTION [None]
